FAERS Safety Report 16161970 (Version 1)
Quarter: 2019Q2

REPORT INFORMATION
  Report Type: Spontaneous
  Country: FR (occurrence: FR)
  Receive Date: 20190405
  Receipt Date: 20190405
  Transmission Date: 20190711
  Serious: Yes (Hospitalization, Other)
  Sender: FDA-Public Use
  Company Number: FR-AUROBINDO-AUR-APL-2019-017704

PATIENT

DRUGS (2)
  1. CEFTRIAXONE. [Suspect]
     Active Substance: CEFTRIAXONE
     Indication: OSTEOCHONDRITIS
     Dosage: 6 GRAM, ONCE A DAY
     Route: 048
     Dates: start: 20190124, end: 20190204
  2. AMOXICILLIN. [Suspect]
     Active Substance: AMOXICILLIN
     Indication: OSTEOCHONDRITIS
     Dosage: 9 GRAM, ONCE A DAY
     Route: 048
     Dates: start: 20190124, end: 20190204

REACTIONS (2)
  - Haematuria [Recovered/Resolved]
  - Acute kidney injury [Recovered/Resolved]

NARRATIVE: CASE EVENT DATE: 20190204
